FAERS Safety Report 5877048-3 (Version None)
Quarter: 2008Q3

REPORT INFORMATION
  Report Type: 
  Country: None (occurrence: None)
  Receive Date: 20080910
  Receipt Date: 20080903
  Transmission Date: 20090109
  Serious: Yes (Other)
  Sender: FDA-Public Use
  Company Number: PHHY2008BR20317

PATIENT
  Sex: Female

DRUGS (2)
  1. TOFRANIL [Suspect]
     Indication: DEPRESSION
     Dosage: 25 MG, BID
     Route: 048
  2. TOFRANIL [Suspect]
     Dosage: 20 TABLETS AT ONCE
     Dates: start: 20080903

REACTIONS (4)
  - DIZZINESS [None]
  - OVERDOSE [None]
  - VISION BLURRED [None]
  - VOMITING [None]
